FAERS Safety Report 9632704 (Version 2)
Quarter: 2013Q4

REPORT INFORMATION
  Report Type: Report from Study
  Country: US (occurrence: US)
  Receive Date: 20131018
  Receipt Date: 20131125
  Transmission Date: 20140711
  Serious: Yes (Other)
  Sender: FDA-Public Use
  Company Number: US-US-EMD SERONO, INC.-7243302

PATIENT
  Sex: Female

DRUGS (1)
  1. REBIF [Suspect]
     Indication: PRODUCT USED FOR UNKNOWN INDICATION
     Route: 058
     Dates: start: 20121210, end: 201308

REACTIONS (4)
  - Abortion spontaneous [Recovered/Resolved]
  - Post abortion haemorrhage [Recovering/Resolving]
  - Abdominal pain [Recovering/Resolving]
  - Maternal exposure timing unspecified [Recovered/Resolved]
